FAERS Safety Report 10606747 (Version 1)
Quarter: 2014Q4

REPORT INFORMATION
  Report Type: Spontaneous
  Country: RU (occurrence: RU)
  Receive Date: 20141125
  Receipt Date: 20141125
  Transmission Date: 20150529
  Serious: Yes (Other)
  Sender: FDA-Public Use
  Company Number: RU-ABBVIE-14P-251-1312065-00

PATIENT
  Age: 4 Year
  Sex: Male

DRUGS (2)
  1. DEPAKENE [Suspect]
     Active Substance: VALPROIC ACID
     Indication: EPILEPSY
     Dosage: EXTENDED-RELEASE
     Route: 048
     Dates: start: 201410, end: 201411
  2. DEPAKENE [Suspect]
     Active Substance: VALPROIC ACID
     Dosage: EXTENDED-RELEASE
     Route: 048
     Dates: start: 201411

REACTIONS (4)
  - Drug ineffective [Recovered/Resolved]
  - Drug level decreased [Recovered/Resolved]
  - Epilepsy [Recovered/Resolved]
  - Product quality issue [Recovered/Resolved]

NARRATIVE: CASE EVENT DATE: 20141105
